FAERS Safety Report 8474208-2 (Version None)
Quarter: 2012Q2

REPORT INFORMATION
  Report Type: 
  Country: None (occurrence: None)
  Receive Date: 20120628
  Receipt Date: 20120621
  Transmission Date: 20120825
  Serious: Yes (Other)
  Sender: FDA-Public Use
  Company Number: US-BAYER-2012-056339

PATIENT

DRUGS (2)
  1. MIRENA [Suspect]
     Dosage: UNK
  2. PARAGARD T 380A [Suspect]
     Indication: CONTRACEPTION

REACTIONS (2)
  - DEVICE BREAKAGE [None]
  - COMPLICATION OF DEVICE REMOVAL [None]
